FAERS Safety Report 15916612 (Version 1)
Quarter: 2019Q1

REPORT INFORMATION
  Report Type: Spontaneous
  Country: FR (occurrence: FR)
  Receive Date: 20190205
  Receipt Date: 20190205
  Transmission Date: 20190417
  Serious: Yes (Hospitalization)
  Sender: FDA-Public Use
  Company Number: FR-TEVA-2019-FR-1003568

PATIENT
  Sex: Male
  Weight: 69 kg

DRUGS (19)
  1. LASILIX [Suspect]
     Active Substance: FUROSEMIDE
     Indication: HYPERTENSION
     Dosage: 100 MILLIGRAM DAILY;
     Route: 048
     Dates: end: 20160209
  2. RIVOTRIL [Suspect]
     Active Substance: CLONAZEPAM
     Indication: PRODUCT USED FOR UNKNOWN INDICATION
     Route: 048
     Dates: end: 20160209
  3. MYFORTIC [Concomitant]
     Active Substance: MYCOPHENOLATE SODIUM
  4. TARDYFERON B9 [FERROUS SULFATE;FOLIC ACID] [Concomitant]
     Active Substance: FERROUS SULFATE\FOLIC ACID
  5. ORACILLINE [Concomitant]
     Active Substance: PENICILLIN V
  6. CALCIDIA [Concomitant]
     Active Substance: CALCIUM CARBONATE
  7. UN-ALFA [Concomitant]
     Active Substance: ALFACALCIDOL
  8. TRIATEC 1,25 MG COMPRIME [Suspect]
     Active Substance: RAMIPRIL
     Indication: HYPERTENSION
     Dosage: 1 DOSAGE FORMS DAILY;
     Route: 048
     Dates: end: 20160209
  9. ARANESP [Concomitant]
     Active Substance: DARBEPOETIN ALFA
  10. NOVORAPID [Concomitant]
     Active Substance: INSULIN ASPART
  11. NOVOMIX [Concomitant]
     Active Substance: INSULIN ASPART
  12. ALLOPURINOL. [Suspect]
     Active Substance: ALLOPURINOL
     Indication: PRODUCT USED FOR UNKNOWN INDICATION
     Route: 048
     Dates: end: 20160209
  13. ATARAX [Concomitant]
     Active Substance: HYDROXYZINE HYDROCHLORIDE
  14. OGASTORO [Concomitant]
     Active Substance: LANSOPRAZOLE
  15. CEFIXIME. [Suspect]
     Active Substance: CEFIXIME
     Indication: URINARY TRACT INFECTION
     Route: 048
     Dates: start: 20160208, end: 20160209
  16. KAYEXALATE [Concomitant]
     Active Substance: SODIUM POLYSTYRENE SULFONATE
  17. XATRAL [Concomitant]
     Active Substance: ALFUZOSIN
  18. HEMIGOXINE NATIVELLE [Suspect]
     Active Substance: DIGOXIN
     Indication: ATRIAL FIBRILLATION
     Route: 048
     Dates: end: 20160209
  19. DELURSAN [Concomitant]
     Active Substance: URSODIOL

REACTIONS (3)
  - Acute kidney injury [Recovered/Resolved]
  - Confusional state [Recovered/Resolved]
  - Orthostatic hypotension [Recovered/Resolved]

NARRATIVE: CASE EVENT DATE: 20160208
